FAERS Safety Report 20408325 (Version 1)
Quarter: 2022Q1

REPORT INFORMATION
  Report Type: Spontaneous
  Country: US (occurrence: US)
  Receive Date: 20220201
  Receipt Date: 20220201
  Transmission Date: 20220423
  Serious: No
  Sender: FDA-Public Use
  Company Number: US-AMGEN-USASP2022012008

PATIENT
  Age: 72 Year
  Sex: Female
  Weight: 59.6 kg

DRUGS (2)
  1. MVASI [Suspect]
     Active Substance: BEVACIZUMAB-AWWB
     Indication: Non-small cell lung cancer
     Dosage: UNK
     Route: 065
     Dates: start: 20211013, end: 20211203
  2. PEMETREXED [Concomitant]
     Active Substance: PEMETREXED
     Dosage: UNK
     Dates: start: 20211013, end: 20211203

REACTIONS (3)
  - Off label use [Unknown]
  - Fatigue [Unknown]
  - Asthenia [Unknown]
